FAERS Safety Report 13389376 (Version 2)
Quarter: 2017Q2

REPORT INFORMATION
  Report Type: Report from Study
  Country: US (occurrence: US)
  Receive Date: 20170330
  Receipt Date: 20170417
  Transmission Date: 20170830
  Serious: Yes (Other)
  Sender: FDA-Public Use
  Company Number: US-009507513-1703USA007861

PATIENT
  Age: 58 Year
  Sex: Male
  Weight: 74.83 kg

DRUGS (1)
  1. SYLATRON [Suspect]
     Active Substance: PEGINTERFERON ALFA-2B
     Dosage: 254 MICROGRAM, 1 INJECTION PER WEEK
     Dates: start: 201404, end: 20170227

REACTIONS (2)
  - Drug dose omission [Unknown]
  - Neoplasm malignant [Unknown]

NARRATIVE: CASE EVENT DATE: 20170227
